FAERS Safety Report 11731082 (Version 1)
Quarter: 2015Q4

REPORT INFORMATION
  Report Type: Spontaneous
  Country: US (occurrence: US)
  Receive Date: 20151110
  Receipt Date: 20151110
  Transmission Date: 20160304
  Serious: No
  Sender: FDA-Public Use
  Company Number: US-ELI_LILLY_AND_COMPANY-US201111002952

PATIENT
  Age: 74 Year
  Sex: Female

DRUGS (3)
  1. FORTEO [Suspect]
     Active Substance: TERIPARATIDE
     Dosage: 20 UG, QD
  2. FORTEO [Suspect]
     Active Substance: TERIPARATIDE
     Dosage: 20 UG, QD
  3. FORTEO [Suspect]
     Active Substance: TERIPARATIDE
     Indication: OSTEOPOROSIS
     Dosage: UNK

REACTIONS (8)
  - Abdominal discomfort [Unknown]
  - Dyspnoea [Unknown]
  - Joint swelling [Unknown]
  - Back pain [Unknown]
  - Headache [Unknown]
  - Spinal disorder [Unknown]
  - Oedema peripheral [Unknown]
  - Face oedema [Unknown]

NARRATIVE: CASE EVENT DATE: 201111
